FAERS Safety Report 8170373-5 (Version None)
Quarter: 2012Q1

REPORT INFORMATION
  Report Type: 
  Country: None (occurrence: None)
  Receive Date: 20120228
  Receipt Date: 20120221
  Transmission Date: 20120608
  Serious: Yes (Other)
  Sender: FDA-Public Use
  Company Number: US-PFIZER INC-2012046364

PATIENT
  Sex: Female

DRUGS (1)
  1. DEPO-MEDROL [Suspect]
     Dosage: UNK

REACTIONS (3)
  - ARACHNOIDITIS [None]
  - INCORRECT ROUTE OF DRUG ADMINISTRATION [None]
  - PAIN [None]
